FAERS Safety Report 20478733 (Version 1)
Quarter: 2022Q1

REPORT INFORMATION
  Report Type: Spontaneous
  Country: US (occurrence: US)
  Receive Date: 20220216
  Receipt Date: 20220216
  Transmission Date: 20220424
  Serious: No
  Sender: FDA-Public Use
  Company Number: US-ORGANON-O2202USA000184

PATIENT
  Age: 54 Year
  Sex: Female

DRUGS (34)
  1. SINEMET CR [Suspect]
     Active Substance: CARBIDOPA\LEVODOPA
     Indication: Parkinson^s disease
     Dosage: 50 MG/ 200 MG, 2 AT 7AM, 1 AT 11 AM, 1 AT 3 PM, AND 2 AT 7 PM
     Route: 048
  2. SINEMET [Interacting]
     Active Substance: CARBIDOPA\LEVODOPA
     Indication: Parkinson^s disease
     Dosage: 1 DOSAGE FORM (25/100 MG), THREE TIMES DAILY (TID)
     Route: 048
  3. SINEMET [Interacting]
     Active Substance: CARBIDOPA\LEVODOPA
     Dosage: TWO TABLETS BY MOUTH FOUR TIMES DAILY
     Route: 048
  4. BUPROPION [Interacting]
     Active Substance: BUPROPION
     Indication: Depression
     Dosage: 200 MG BY MOUTH TWO TIMES DAILY, EXTENDED RELEASE
     Route: 048
  5. SINGULAIR [Concomitant]
     Active Substance: MONTELUKAST SODIUM
     Indication: Asthma
     Dosage: 10 MILLIGRAM, QD
     Route: 048
  6. ZOCOR [Concomitant]
     Active Substance: SIMVASTATIN
     Indication: Hyperlipidaemia
     Dosage: 40 MG BY MOUTH EVERY NIGHT AT BEDTIME
     Route: 048
  7. TIZANIDINE [Concomitant]
     Active Substance: TIZANIDINE
     Indication: Muscle spasms
     Dosage: 2 MILLIGRAM, Q8H
     Route: 048
  8. NITROGLYCERIN [Concomitant]
     Active Substance: NITROGLYCERIN
     Indication: Angina pectoris
     Dosage: 0.4 MILLIGRAM (MG), AS NEEDED PRN
     Route: 060
  9. BUSPIRONE [Concomitant]
     Active Substance: BUSPIRONE HYDROCHLORIDE
     Indication: Anxiety disorder
     Dosage: 30 MILLIGRAM, BID
     Route: 048
  10. CLONAZEPAM [Concomitant]
     Active Substance: CLONAZEPAM
     Indication: Anxiety disorder
     Dosage: 0.5 MG BY MOUTH TWO TIMES DAILY AS NEEDED FOR ANXIETY
     Route: 048
  11. ALBUTEROL [Concomitant]
     Active Substance: ALBUTEROL
     Indication: Asthma
     Dosage: 2 DOSAGE FORM, EVERY 6 HOUR (Q6H), AS NEEDED
  12. ALBUTEROL [Concomitant]
     Active Substance: ALBUTEROL
     Indication: Dyspnoea
  13. ALBUTEROL [Concomitant]
     Active Substance: ALBUTEROL
     Indication: Asthma
     Dosage: METERED-DOSE INHALERS 90 MICROGRAM (MCG) ACTUATION (2 PUFFS), EVERY 6 HOURS AS NEEDED
  14. ALBUTEROL [Concomitant]
     Active Substance: ALBUTEROL
     Indication: Dyspnoea
  15. PULMICORT TURBUHALER [Concomitant]
     Active Substance: BUDESONIDE
     Indication: Asthma
     Dosage: 180 MCG/ACTUATION INHALED TWO TIMES DAILY
  16. LANTUS [Concomitant]
     Active Substance: INSULIN GLARGINE
     Indication: Diabetes mellitus
     Dosage: 100 UNITS/ML 30 UNITS INJECTED SUBCUTANEOUSLY TWO TIMES DAILY (IN THE MORNING AND EVENING)
     Route: 058
  17. METFORMIN [Concomitant]
     Active Substance: METFORMIN HYDROCHLORIDE
     Indication: Diabetes mellitus
     Dosage: 1000 MILLIGRAM, BID
     Route: 048
  18. NOVOLOG [Concomitant]
     Active Substance: INSULIN ASPART
     Indication: Diabetes mellitus
     Dosage: 100 UNITS/ML 2?10 UNITS INJECTED SUBCUTANEOUSLY BY SLIDING SCALE BEFORE MEALS AND AT BEDTIME IF HAVI
     Route: 058
  19. OMEPRAZOLE [Concomitant]
     Active Substance: OMEPRAZOLE
     Indication: Gastrooesophageal reflux disease
     Dosage: 20 MILLIGRAM, BID
     Route: 048
  20. RANITIDINE [Concomitant]
     Active Substance: RANITIDINE
     Indication: Gastrooesophageal reflux disease
     Dosage: 150 MILLIGRAM, BID
     Route: 048
  21. HYDROCHLOROTHIAZIDE [Concomitant]
     Active Substance: HYDROCHLOROTHIAZIDE
     Indication: Hypertension
     Dosage: 25 MILLIGRAM, QD
     Route: 048
  22. LISINOPRIL [Concomitant]
     Active Substance: LISINOPRIL
     Indication: Hypertension
     Dosage: 2.5 MILLIGRAM, QD
     Route: 048
  23. SUVOREXANT [Concomitant]
     Active Substance: SUVOREXANT
     Indication: Insomnia
     Dosage: 20 MG BY MOUTH EVERY NIGHT AT BEDTIME
     Route: 048
  24. ELETRIPTAN [Concomitant]
     Active Substance: ELETRIPTAN
     Indication: Migraine
     Dosage: 40 MILLIGRAM, AS NEEDED (PRN)
     Route: 048
  25. ELETRIPTAN [Concomitant]
     Active Substance: ELETRIPTAN
     Indication: Headache
  26. ONDANSETRON [Concomitant]
     Active Substance: ONDANSETRON
     Indication: Nausea
     Dosage: 8 MILLIGRAM, TID, AS NEEDED
     Route: 048
  27. ONDANSETRON [Concomitant]
     Active Substance: ONDANSETRON
     Indication: Vomiting
  28. GABAPENTIN [Concomitant]
     Active Substance: GABAPENTIN
     Indication: Pain
     Dosage: 800 MILLIGRAM, TID
     Route: 048
  29. MORPHINE SULFATE [Concomitant]
     Active Substance: MORPHINE SULFATE
     Indication: Pain
     Dosage: 15 MILLIGRAM, BID
     Route: 048
  30. ACETAMINOPHEN\OXYCODONE HYDROCHLORIDE [Concomitant]
     Active Substance: ACETAMINOPHEN\OXYCODONE HYDROCHLORIDE
     Indication: Pain
     Dosage: 1 DOSAGE FORM, QID (10/325 MG BY MOUTH FOUR TIMES DAILY)
     Route: 048
  31. ROPINIROLE [Concomitant]
     Active Substance: ROPINIROLE
     Indication: Restless legs syndrome
     Dosage: 0.25 MILLIGRAM, BID
     Route: 048
  32. MAGNESIUM OXIDE [Concomitant]
     Active Substance: MAGNESIUM OXIDE
     Indication: Restless legs syndrome
     Dosage: 400 MILLIGRAM, QD
     Route: 048
  33. VITAMINS NOS [Concomitant]
     Active Substance: VITAMINS
     Indication: Supplementation therapy
     Dosage: UNK, QD
     Route: 048
  34. VITAMIN D3 [Concomitant]
     Active Substance: CHOLECALCIFEROL
     Indication: Supplementation therapy
     Dosage: 1000 IU INTERNATIONAL UNIT(S), QD
     Route: 048

REACTIONS (2)
  - Drug ineffective [Unknown]
  - Drug interaction [Unknown]
